FAERS Safety Report 25163075 (Version 1)
Quarter: 2025Q2

REPORT INFORMATION
  Report Type: Spontaneous
  Country: FR (occurrence: FR)
  Receive Date: 20250404
  Receipt Date: 20250404
  Transmission Date: 20250717
  Serious: Yes (Death)
  Sender: PFIZER
  Company Number: None

PATIENT
  Age: 78 Year
  Sex: Male
  Weight: 64 kg

DRUGS (2)
  1. BRAFTOVI [Suspect]
     Active Substance: ENCORAFENIB
     Indication: Metastatic malignant melanoma
     Route: 048
     Dates: start: 20240214
  2. MEKTOVI [Suspect]
     Active Substance: BINIMETINIB
     Indication: Metastatic malignant melanoma
     Route: 048
     Dates: start: 20240214

REACTIONS (3)
  - Agitation [Fatal]
  - Metastatic malignant melanoma [Fatal]
  - Malignant neoplasm progression [Fatal]

NARRATIVE: CASE EVENT DATE: 20240927
